FAERS Safety Report 8765273 (Version 1)
Quarter: 2012Q4

REPORT INFORMATION
  Report Type: 
  Country: CN (occurrence: CN)
  Receive Date: 20120831
  Receipt Date: 20120831
  Transmission Date: 20130627
  Serious: Yes (Hospitalization)
  Sender: FDA-Public Use
  Company Number: CN-ASTRAZENECA-2012SE63785

PATIENT
  Age: 837 Month
  Sex: Male
  Weight: 70 kg

DRUGS (3)
  1. PLENDIL [Suspect]
     Indication: HYPERTENSION
     Route: 048
  2. PLENDIL [Suspect]
     Indication: HYPERTENSION
     Route: 048
     Dates: start: 20090505, end: 20090512
  3. PLENDIL [Suspect]
     Indication: HYPERTENSION
     Route: 048

REACTIONS (5)
  - Blood pressure increased [Unknown]
  - Dizziness [Unknown]
  - Headache [Unknown]
  - Eyelid oedema [Recovering/Resolving]
  - Drug ineffective [Unknown]
